FAERS Safety Report 9094675 (Version 2)
Quarter: 2013Q1

REPORT INFORMATION
  Report Type: Spontaneous
  Country: US (occurrence: US)
  Receive Date: 20130204
  Receipt Date: 20130305
  Transmission Date: 20140127
  Serious: No
  Sender: FDA-Public Use
  Company Number: US-ASTRAZENECA-2013SE07088

PATIENT
  Age: 44 Year
  Sex: Male

DRUGS (4)
  1. RHINOCORT AQUA [Suspect]
     Indication: HYPERSENSITIVITY
     Dosage: 32 MCG 2 SPRAY DAILY
     Route: 045
     Dates: start: 2008
  2. FENOFIBRATE [Concomitant]
     Indication: BLOOD TRIGLYCERIDES INCREASED
  3. SUMATRIPTAN [Concomitant]
     Indication: MIGRAINE
  4. ALLERCLEAR D [Concomitant]
     Indication: HYPERSENSITIVITY

REACTIONS (1)
  - Laceration [Recovered/Resolved]
